FAERS Safety Report 21081603 (Version 4)
Quarter: 2022Q3

REPORT INFORMATION
  Report Type: Report from Study
  Country: JP (occurrence: JP)
  Receive Date: 20220714
  Receipt Date: 20220822
  Transmission Date: 20221027
  Serious: Yes (Hospitalization)
  Sender: FDA-Public Use
  Company Number: JP-ONO-2019JP037070

PATIENT
  Age: 52 Year
  Sex: Male
  Weight: 63.4 kg

DRUGS (33)
  1. ETELCALCETIDE [Suspect]
     Active Substance: ETELCALCETIDE
     Indication: Hyperparathyroidism secondary
     Dosage: 5 MILLIGRAM, Q56H
     Route: 010
     Dates: start: 20190724, end: 20191209
  2. ETELCALCETIDE [Suspect]
     Active Substance: ETELCALCETIDE
     Dosage: 2.5 MILLIGRAM, Q56H
     Route: 010
     Dates: start: 20191211, end: 20200120
  3. ETELCALCETIDE [Suspect]
     Active Substance: ETELCALCETIDE
     Dosage: 2.5 MILLIGRAM, Q84H
     Route: 010
     Dates: start: 20200124
  4. MAXACALCITOL [Suspect]
     Active Substance: MAXACALCITOL
     Indication: Product used for unknown indication
     Dosage: 7.5 MICROGRAM, Q56H
     Route: 041
     Dates: start: 20190807, end: 20190909
  5. MAXACALCITOL [Suspect]
     Active Substance: MAXACALCITOL
     Dosage: 5.0 MICROGRAM, Q84H
     Route: 041
     Dates: start: 20190911, end: 20190918
  6. MAXACALCITOL [Suspect]
     Active Substance: MAXACALCITOL
     Dosage: 7.5 MICROGRAM, QWK
     Route: 041
     Dates: start: 20190913, end: 20190913
  7. MAXACALCITOL [Suspect]
     Active Substance: MAXACALCITOL
     Dosage: 5 MICROGRAM, Q56H
     Route: 041
     Dates: start: 20190920, end: 20191021
  8. MAXACALCITOL [Suspect]
     Active Substance: MAXACALCITOL
     Dosage: 5 MICROGRAM, Q84H
     Route: 041
     Dates: start: 20191023, end: 20191209
  9. MAXACALCITOL [Suspect]
     Active Substance: MAXACALCITOL
     Dosage: 5 MICROGRAM, Q84H
     Route: 041
     Dates: start: 20191213, end: 20200601
  10. MAXACALCITOL [Suspect]
     Active Substance: MAXACALCITOL
     Dosage: 2.5 MICROGRAM, QWK
     Route: 041
     Dates: start: 20191211, end: 20200529
  11. MAXACALCITOL [Suspect]
     Active Substance: MAXACALCITOL
     Dosage: 2.5 MICROGRAM, Q56H
     Route: 041
     Dates: start: 20200603, end: 20200727
  12. MAXACALCITOL [Suspect]
     Active Substance: MAXACALCITOL
     Dosage: 5.0 MICROGRAM, Q56H
     Route: 041
     Dates: start: 20190920, end: 20191021
  13. MAXACALCITOL [Suspect]
     Active Substance: MAXACALCITOL
     Dosage: 5.0 MICROGRAM, Q84H
     Route: 041
     Dates: start: 20191023, end: 20191209
  14. MAXACALCITOL [Suspect]
     Active Substance: MAXACALCITOL
     Dosage: 5.0 MICROGRAM, Q84H
     Route: 041
     Dates: start: 20191213, end: 20200601
  15. MAXACALCITOL [Suspect]
     Active Substance: MAXACALCITOL
     Dosage: 2.5 MICROGRAM, Q56H
     Route: 041
     Dates: start: 20200603, end: 20200727
  16. MAXACALCITOL [Suspect]
     Active Substance: MAXACALCITOL
     Dosage: 2.5 MICROGRAM, Q84H
     Route: 041
     Dates: start: 20200729, end: 20210317
  17. MAXACALCITOL [Suspect]
     Active Substance: MAXACALCITOL
     Dosage: 2.5 MICROGRAM, Q84H
     Route: 041
     Dates: start: 20210322, end: 20211004
  18. MAXACALCITOL [Suspect]
     Active Substance: MAXACALCITOL
     Dosage: 2.5 MICROGRAM, Q56H
     Route: 041
     Dates: start: 20211006, end: 20220425
  19. MAXACALCITOL [Suspect]
     Active Substance: MAXACALCITOL
     Dosage: 2.5 MICROGRAM, QW
     Route: 041
     Dates: start: 20220427
  20. MAXACALCITOL [Suspect]
     Active Substance: MAXACALCITOL
     Dosage: 5 MICROGRAM, Q84H
     Route: 041
     Dates: start: 20220429
  21. NICORANDIL [Concomitant]
     Active Substance: NICORANDIL
     Indication: Angina pectoris
     Dosage: 15 MILLIGRAM, Q8H
     Route: 048
     Dates: start: 20190306
  22. VALSARTAN [Concomitant]
     Active Substance: VALSARTAN
     Indication: Hypertension
     Dosage: 40 MILLIGRAM, QD
     Route: 048
     Dates: start: 20150815
  23. OXAROL [Concomitant]
     Active Substance: MAXACALCITOL
     Dosage: 5.0 MICROGRAM, Q56H
     Route: 065
     Dates: start: 20190612, end: 20190805
  24. ASPIRIN [Concomitant]
     Active Substance: ASPIRIN
     Indication: Angina pectoris
     Dosage: 100 MILLIGRAM, QD
     Route: 048
     Dates: start: 20120223
  25. LANSOPRAZOLE [Concomitant]
     Active Substance: LANSOPRAZOLE
     Indication: Prophylaxis
     Dosage: 15 MILLIGRAM, QD
     Route: 048
     Dates: start: 20120223
  26. CLOPIDOGREL [Concomitant]
     Active Substance: CLOPIDOGREL BISULFATE
     Indication: Angina pectoris
     Dosage: 75 MILLIGRAM, QD
     Route: 048
     Dates: start: 20120223
  27. ROSUVASTATIN [Concomitant]
     Active Substance: ROSUVASTATIN
     Indication: Dyslipidaemia
     Dosage: 2.5 MILLIGRAM, QD
     Route: 048
  28. SPIRONOLACTONE [Concomitant]
     Active Substance: SPIRONOLACTONE
     Indication: Hypertension
     Dosage: 25 MILLIGRAM, QD
     Route: 048
     Dates: start: 20140519
  29. FUROSEMIDE [Concomitant]
     Active Substance: FUROSEMIDE
     Indication: Renal failure
     Dosage: 40 MILLIGRAM, QD
     Route: 048
     Dates: start: 20111125
  30. CARVEDILOL [Concomitant]
     Active Substance: CARVEDILOL
     Indication: Hypertension
     Dosage: 20 MILLIGRAM, Q12H
     Route: 048
     Dates: start: 20180411
  31. TOCOPHEROL ACETATE TOWA [Concomitant]
     Indication: Dyslipidaemia
     Dosage: 300 MILLIGRAM, Q8H
     Route: 048
     Dates: start: 20121228
  32. FERRIC CITRATE ANHYDROUS [Concomitant]
     Active Substance: FERRIC CITRATE ANHYDROUS
     Dosage: 250 MILLIGRAM, QD
     Route: 048
     Dates: start: 20200603, end: 20200828
  33. FERRIC CITRATE ANHYDROUS [Concomitant]
     Active Substance: FERRIC CITRATE ANHYDROUS
     Dosage: 500 MILLIGRAM, QD
     Route: 048
     Dates: start: 20220427, end: 20220803

REACTIONS (2)
  - SARS-CoV-2 test positive [Recovered/Resolved]
  - Chest pain [Recovered/Resolved]

NARRATIVE: CASE EVENT DATE: 20191009
